FAERS Safety Report 8244971-4 (Version None)
Quarter: 2012Q1

REPORT INFORMATION
  Report Type: 
  Country: None (occurrence: None)
  Receive Date: 20120329
  Receipt Date: 20111104
  Transmission Date: 20120608
  Serious: No
  Sender: FDA-Public Use
  Company Number: US-MYLANLABS-2011S1022219

PATIENT
  Sex: Female

DRUGS (3)
  1. FENTANYL-100 [Suspect]
     Dosage: CHANGE Q72H THEN Q48H AND THEN BACK TO Q72H
     Route: 062
  2. FENTANYL-100 [Suspect]
     Indication: PAIN
     Dosage: CHANGE Q72H THEN Q48H AND THEN BACK TO Q72H
     Route: 062
  3. PROPRANOLOL [Concomitant]

REACTIONS (3)
  - PAIN [None]
  - DRUG EFFECT DECREASED [None]
  - DRUG WITHDRAWAL SYNDROME [None]
